FAERS Safety Report 5575917-5 (Version None)
Quarter: 2007Q4

REPORT INFORMATION
  Report Type: 
  Country: None (occurrence: None)
  Receive Date: 20071228
  Receipt Date: 20071219
  Transmission Date: 20080405
  Serious: Yes (Disabling)
  Sender: FDA-Public Use
  Company Number: GB-BRACCO-BRO-012394

PATIENT
  Sex: Male

DRUGS (4)
  1. NIOPAM [Suspect]
     Indication: COMPUTERISED TOMOGRAM ABDOMEN
     Route: 042
     Dates: start: 20071128, end: 20071128
  2. CHLORPHENAMINE [Concomitant]
     Route: 042
     Dates: start: 20071128, end: 20071128
  3. HYDROCORTISONE                     /00028601/ [Concomitant]
     Route: 042
     Dates: start: 20071128, end: 20071128
  4. OXYGEN [Concomitant]
     Route: 065
     Dates: start: 20071128, end: 20071128

REACTIONS (4)
  - INCONTINENCE [None]
  - PELVIC DISCOMFORT [None]
  - PRURITUS [None]
  - RASH [None]
